FAERS Safety Report 9269071 (Version 2)
Quarter: 2013Q2

REPORT INFORMATION
  Report Type: Spontaneous
  Country: AU (occurrence: AU)
  Receive Date: 20130503
  Receipt Date: 20130528
  Transmission Date: 20140414
  Serious: Yes (Hospitalization, Other)
  Sender: FDA-Public Use
  Company Number: AU-AMGEN-AUSSP2013030211

PATIENT
  Age: 46 Year
  Sex: Female

DRUGS (1)
  1. NPLATE [Suspect]
     Indication: IDIOPATHIC THROMBOCYTOPENIC PURPURA
     Dosage: 100 MUG, QWK
     Route: 058
     Dates: start: 20130313

REACTIONS (4)
  - Cerebral venous thrombosis [Recovering/Resolving]
  - Subdural haematoma [Unknown]
  - Headache [Not Recovered/Not Resolved]
  - Thrombocytopenia [Unknown]
